FAERS Safety Report 4841437-6 (Version None)
Quarter: 2005Q4

REPORT INFORMATION
  Report Type: 
  Country: None (occurrence: None)
  Receive Date: 20051130
  Receipt Date: 20050720
  Transmission Date: 20060501
  Serious: No
  Sender: FDA-Public Use
  Company Number: US-GLAXOSMITHKLINE-A0567032A

PATIENT
  Age: 42 Year
  Sex: Female
  Weight: 77.3 kg

DRUGS (4)
  1. WELLBUTRIN XL [Suspect]
     Indication: DEPRESSION
     Dosage: 300MG PER DAY
     Route: 048
     Dates: start: 20050711
  2. PAXIL [Concomitant]
  3. TRAZODONE [Concomitant]
  4. LITHIUM CARBONATE [Concomitant]
     Dosage: 600MG AT NIGHT

REACTIONS (3)
  - ANXIETY [None]
  - CHEST DISCOMFORT [None]
  - OVERDOSE [None]
